FAERS Safety Report 6154450-6 (Version None)
Quarter: 2009Q2

REPORT INFORMATION
  Report Type: 
  Country: None (occurrence: None)
  Receive Date: 20090414
  Receipt Date: 20090407
  Transmission Date: 20091009
  Serious: Yes (Hospitalization)
  Sender: FDA-Public Use
  Company Number: FI-AVENTIS-200913575GDDC

PATIENT
  Age: 84 Year
  Sex: Male

DRUGS (11)
  1. AMARYL [Suspect]
     Route: 048
     Dates: end: 20090401
  2. FURESIS COMP [Suspect]
     Dosage: DOSE: 80 MG/100 MG
     Route: 048
     Dates: end: 20090401
  3. NITROSID [Concomitant]
     Indication: CORONARY ARTERY DISEASE
     Route: 048
  4. EMCONCOR                           /00802601/ [Concomitant]
     Indication: HYPERTENSION
     Route: 048
  5. DIGOXIN SEMI [Concomitant]
     Route: 048
  6. PANACOD [Concomitant]
     Dosage: DOSE: 1500MG/90MG
     Route: 048
  7. MAREVAN [Concomitant]
     Route: 048
  8. ARICEPT [Concomitant]
     Route: 048
  9. OMEPRAZOLE [Concomitant]
     Route: 048
  10. TAMSULOSIN HYDROCHLORIDE [Concomitant]
     Route: 048
  11. FINASTERIDE [Concomitant]
     Route: 048

REACTIONS (3)
  - FOLATE DEFICIENCY [None]
  - HAEMOLYSIS [None]
  - NORMOCHROMIC NORMOCYTIC ANAEMIA [None]
